FAERS Safety Report 4597796-5 (Version None)
Quarter: 2005Q1

REPORT INFORMATION
  Report Type: 
  Country: None (occurrence: None)
  Receive Date: 20050125
  Receipt Date: 20040903
  Transmission Date: 20050727
  Serious: No
  Sender: FDA-Public Use
  Company Number: USA040977402

PATIENT
  Age: 85 Year
  Sex: Female
  Weight: 47 kg

DRUGS (4)
  1. FORTEO [Suspect]
     Indication: BONE DENSITY DECREASED
     Dosage: 20 UG/1 DAY
     Dates: start: 20040831
  2. CALCIUM GLUCONATE [Concomitant]
  3. FOSAMAX [Concomitant]
  4. HUMIRA [Concomitant]

REACTIONS (4)
  - FATIGUE [None]
  - NAUSEA [None]
  - SOMNOLENCE [None]
  - THROAT IRRITATION [None]
